FAERS Safety Report 24976348 (Version 1)
Quarter: 2025Q1

REPORT INFORMATION
  Report Type: Report from Study
  Country: TW (occurrence: TW)
  Receive Date: 20250217
  Receipt Date: 20250217
  Transmission Date: 20250408
  Serious: Yes (Hospitalization)
  Sender: ROCHE
  Company Number: TW-ROCHE-10000209451

PATIENT
  Age: 56 Year
  Sex: Female

DRUGS (3)
  1. RITUXIMAB [Suspect]
     Active Substance: RITUXIMAB
     Indication: Immune thrombocytopenia
     Route: 065
  2. PREDNISOLONE [Suspect]
     Active Substance: PREDNISOLONE
     Indication: Immune thrombocytopenia
     Route: 065
  3. moderna [Concomitant]

REACTIONS (2)
  - COVID-19 [Unknown]
  - Off label use [Unknown]
